FAERS Safety Report 12542537 (Version 1)
Quarter: 2016Q3

REPORT INFORMATION
  Report Type: Spontaneous
  Country: GR (occurrence: GR)
  Receive Date: 20160709
  Receipt Date: 20160709
  Transmission Date: 20161109
  Serious: Yes (Disabling, Other)
  Sender: FDA-Public Use
  Company Number: GR-CIPLA LTD.-2016GR09003

PATIENT

DRUGS (7)
  1. ALENDRONATE [Suspect]
     Active Substance: ALENDRONATE SODIUM
     Indication: BONE DISORDER
     Dosage: UNK
     Route: 065
  2. ETIDRONATE [Suspect]
     Active Substance: ETIDRONATE DISODIUM
     Indication: BONE DISORDER
     Dosage: UNK
     Route: 065
  3. CALCITONIN [Suspect]
     Active Substance: CALCITONIN
     Indication: BONE DISORDER
     Dosage: UNK
     Route: 065
  4. PAMIDRONATE [Suspect]
     Active Substance: PAMIDRONATE DISODIUM
     Indication: BONE DISORDER
     Dosage: UNK
     Route: 065
  5. DENOSUMAB [Suspect]
     Active Substance: DENOSUMAB
     Indication: OSTEITIS DEFORMANS
     Dosage: 30 MG, QID
     Route: 058
  6. ZOLEDRONIC ACID [Suspect]
     Active Substance: ZOLEDRONIC ACID
     Indication: BONE DISORDER
     Dosage: UNK
     Route: 065
  7. RISEDRONATE [Suspect]
     Active Substance: RISEDRONATE SODIUM
     Indication: BONE DISORDER
     Dosage: UNK
     Route: 065

REACTIONS (6)
  - Hypocalcaemia [Unknown]
  - Retinal disorder [Not Recovered/Not Resolved]
  - Deafness [Unknown]
  - Blindness [Not Recovered/Not Resolved]
  - Gait disturbance [Unknown]
  - Cataract [Unknown]
